FAERS Safety Report 4323046-0 (Version None)
Quarter: 2004Q1

REPORT INFORMATION
  Report Type: 
  Country: None (occurrence: None)
  Receive Date: 20040325
  Receipt Date: 20040317
  Transmission Date: 20041129
  Serious: Yes (Disabling)
  Sender: FDA-Public Use
  Company Number: 200413265GDDC

PATIENT
  Age: 49 Year
  Sex: Female
  Weight: 56 kg

DRUGS (2)
  1. FEXOFENADINE HCL [Suspect]
     Route: 048
     Dates: start: 20031027, end: 20031028
  2. FERROUS SULFATE ANHYDROUS [Concomitant]
     Route: 048
     Dates: end: 20031028

REACTIONS (3)
  - ANTINUCLEAR ANTIBODY POSITIVE [None]
  - HEPATITIS ACUTE [None]
  - JAUNDICE [None]
